FAERS Safety Report 6657097-8 (Version None)
Quarter: 2010Q1

REPORT INFORMATION
  Report Type: 
  Country: None (occurrence: None)
  Receive Date: 20100330
  Receipt Date: 20100319
  Transmission Date: 20100710
  Serious: Yes (Other)
  Sender: FDA-Public Use
  Company Number: US-JNJFOC-20100203162

PATIENT
  Sex: Female
  Weight: 70.31 kg

DRUGS (2)
  1. EXTRA STRENGTH TYLENOL PM [Suspect]
     Indication: HEADACHE
  2. AVALIDE [Concomitant]

REACTIONS (6)
  - ABDOMINAL PAIN UPPER [None]
  - DIARRHOEA [None]
  - PRODUCT QUALITY ISSUE [None]
  - SYNCOPE [None]
  - VISION BLURRED [None]
  - VOMITING [None]
